FAERS Safety Report 7058907-5 (Version None)
Quarter: 2010Q4

REPORT INFORMATION
  Report Type: 
  Country: None (occurrence: None)
  Receive Date: 20101022
  Receipt Date: 20101018
  Transmission Date: 20110411
  Serious: Yes (Life-Threatening, Hospitalization, Other)
  Sender: FDA-Public Use
  Company Number: CA-AMGEN LTD.-QUU434113

PATIENT

DRUGS (7)
  1. NEULASTA [Suspect]
     Indication: CHEMOTHERAPY
     Dosage: 6 MG, UNK
     Route: 058
     Dates: start: 20100602, end: 20100602
  2. DOXORUBICIN HCL [Concomitant]
     Dosage: UNK UNK, UNK
     Dates: start: 20100601
  3. VINCRISTINE SULFATE [Concomitant]
     Dosage: UNK UNK, UNK
     Dates: start: 20100601
  4. CYCLOPHOSPHAMIDE [Concomitant]
     Dosage: UNK UNK, UNK
     Dates: start: 20100601
  5. PREDNISONE [Concomitant]
     Dosage: UNK UNK, UNK
     Dates: start: 20100601
  6. RITUXIMAB [Concomitant]
     Dosage: UNK UNK, UNK
     Dates: start: 20100601
  7. BLOOD TRANSFUSION, AUXILIARY PRODUCTS [Concomitant]

REACTIONS (3)
  - ESCHERICHIA URINARY TRACT INFECTION [None]
  - FEBRILE NEUTROPENIA [None]
  - PANCYTOPENIA [None]
